FAERS Safety Report 8496152-7 (Version None)
Quarter: 2012Q3

REPORT INFORMATION
  Report Type: 
  Country: None (occurrence: None)
  Receive Date: 20120709
  Receipt Date: 20120629
  Transmission Date: 20120928
  Serious: Yes (Hospitalization)
  Sender: FDA-Public Use
  Company Number: NL-JNJFOC-20120112953

PATIENT
  Sex: Male
  Weight: 45 kg

DRUGS (6)
  1. CALCIUM [Concomitant]
  2. ANTIBIOTICS [Concomitant]
     Indication: CROHN'S DISEASE
  3. REMICADE [Suspect]
     Indication: CROHN'S DISEASE
     Route: 042
  4. REMICADE [Suspect]
     Route: 042
     Dates: end: 20111207
  5. VITAMIN D [Concomitant]
  6. REMICADE [Suspect]
     Route: 042
     Dates: start: 20090216

REACTIONS (1)
  - NO THERAPEUTIC RESPONSE [None]
